FAERS Safety Report 16204626 (Version 1)
Quarter: 2019Q2

REPORT INFORMATION
  Report Type: Report from Study
  Country: US (occurrence: US)
  Receive Date: 20190416
  Receipt Date: 20190416
  Transmission Date: 20190711
  Serious: No
  Sender: FDA-Public Use
  Company Number: PHEH2019US015939

PATIENT
  Age: 58 Year
  Sex: Female

DRUGS (1)
  1. COSENTYX [Suspect]
     Active Substance: SECUKINUMAB
     Indication: PSORIASIS
     Dosage: 300 MG, UNK (WEEKS 0, 1, 2, 3, AND 4. HEN ONCE EVERY 4 WEEKS THEREAFTER)
     Route: 058
     Dates: start: 20190315

REACTIONS (4)
  - Skin fissures [Unknown]
  - Hypersensitivity [Unknown]
  - Psoriasis [Unknown]
  - Swelling face [Unknown]
